FAERS Safety Report 25891487 (Version 1)
Quarter: 2025Q4

REPORT INFORMATION
  Report Type: Report from Study
  Country: GB (occurrence: GB)
  Receive Date: 20251007
  Receipt Date: 20251007
  Transmission Date: 20260117
  Serious: Yes (Hospitalization, Other)
  Sender: TEVA
  Company Number: GB-JNJFOC-20151202090

PATIENT
  Age: 67 Year
  Sex: Male
  Weight: 87 kg

DRUGS (9)
  1. PREDNISOLONE [Suspect]
     Active Substance: PREDNISOLONE
     Indication: Plasma cell myeloma
     Dosage: DAY 1 TO 4
     Route: 048
     Dates: start: 20151124, end: 20151127
  2. VELCADE [Suspect]
     Active Substance: BORTEZOMIB
     Indication: Plasma cell myeloma
     Dosage: LYOPHILIZED POWDER, MOST RECENT DOSE ON 2015-11-27
     Route: 058
     Dates: start: 20151124
  3. TOLODODEKIN ALFA [Suspect]
     Active Substance: TOLODODEKIN ALFA
     Indication: Plasma cell myeloma
     Route: 042
  4. MELPHALAN [Suspect]
     Active Substance: MELPHALAN
     Indication: Plasma cell myeloma
     Dosage: DAYS 1 TO 4 OF EACH CYCLE INITIATED ON 2015-11-24 (CYCLE 1 DAY1) (CYCLE 1 DAY4 INITIATED ON 2015-...
     Route: 048
     Dates: start: 20151124
  5. SIMVASTATIN [Concomitant]
     Active Substance: SIMVASTATIN
     Indication: Hypercholesterolaemia
     Route: 048
     Dates: start: 2011
  6. ZOMETA [Concomitant]
     Active Substance: ZOLEDRONIC ACID
     Indication: Blood calcium
     Route: 048
     Dates: start: 20150519
  7. SELENIUM [Concomitant]
     Active Substance: SELENIUM
     Indication: Nutritional supplementation
     Route: 048
     Dates: start: 201201
  8. ASPIRIN [Concomitant]
     Active Substance: ASPIRIN
     Indication: Thrombosis prophylaxis
     Route: 048
     Dates: start: 2014
  9. DALTEPARIN [Concomitant]
     Active Substance: DALTEPARIN
     Indication: Thrombosis prophylaxis

REACTIONS (1)
  - Sepsis [Recovered/Resolved]

NARRATIVE: CASE EVENT DATE: 20151130
